FAERS Safety Report 16671334 (Version 3)
Quarter: 2021Q2

REPORT INFORMATION
  Report Type: Spontaneous
  Country: ES (occurrence: ES)
  Receive Date: 20190806
  Receipt Date: 20210513
  Transmission Date: 20210716
  Serious: Yes (Other)
  Sender: FDA-Public Use
  Company Number: ES-JNJFOC-20190802441

PATIENT
  Age: 66 Year
  Sex: Male

DRUGS (6)
  1. NALOXONE HYDROCHLORIDE W/OXYCODONE HYDROCHLOR [Suspect]
     Active Substance: NALOXONE HYDROCHLORIDE\OXYCODONE HYDROCHLORIDE
     Indication: BONE PAIN
     Dosage: 15 MILLIGRAM, Q12H (10+5 MG)?ADDITIONAL INFO: S?OXYCODONE/NALOXONE SANDOZ?CNS?OPIOID
     Route: 065
     Dates: start: 201701
  2. BUPRENORPHINE. [Suspect]
     Active Substance: BUPRENORPHINE
     Indication: BONE PAIN
     Route: 065
     Dates: start: 201701
  3. PREGABALIN. [Suspect]
     Active Substance: PREGABALIN
     Indication: BONE PAIN
     Dosage: 150 MG EVERY 12 HOUR(S)?ADDITIONAL INFO: S?PREGABALIN?CNS?NON?BENZO CNS DEPRESSANT
     Route: 065
     Dates: start: 201701
  4. IBUPROFEN. [Suspect]
     Active Substance: IBUPROFEN
     Indication: BONE PAIN
     Dosage: 600 MG EVERY 12 HOUR(S)
     Route: 065
     Dates: start: 201701
  5. MORPHINE SULFATE. [Suspect]
     Active Substance: MORPHINE SULFATE
     Indication: BREAKTHROUGH PAIN
     Dosage: 10 MG (4?5 MORPHINE RESCUES), UNKJ?ADDITIONAL INFO: S?MORPHINE?CNS?OPIOID
     Route: 065
     Dates: start: 201701
  6. BUPRENORPHINE. [Suspect]
     Active Substance: BUPRENORPHINE
     Route: 065
     Dates: start: 201602

REACTIONS (4)
  - Neurotoxicity [Recovering/Resolving]
  - Off label use [Unknown]
  - Somnolence [Recovering/Resolving]
  - Disorientation [Recovering/Resolving]

NARRATIVE: CASE EVENT DATE: 201701
